FAERS Safety Report 9466356 (Version 1)
Quarter: 2013Q3

REPORT INFORMATION
  Report Type: Spontaneous
  Country: US (occurrence: US)
  Receive Date: 20130820
  Receipt Date: 20130820
  Transmission Date: 20140515
  Serious: Yes (Other)
  Sender: FDA-Public Use
  Company Number: US-ASTRAZENECA-2013SE62865

PATIENT
  Sex: Female

DRUGS (2)
  1. CRESTOR [Suspect]
     Route: 048
  2. OTHER MEDICAITONS [Concomitant]

REACTIONS (5)
  - Cardiac disorder [Unknown]
  - Angiopathy [Unknown]
  - Cerebrovascular accident [Unknown]
  - Low density lipoprotein increased [Unknown]
  - Intentional drug misuse [Unknown]
